FAERS Safety Report 7381470-6 (Version None)
Quarter: 2011Q1

REPORT INFORMATION
  Report Type: 
  Country: None (occurrence: None)
  Receive Date: 20110329
  Receipt Date: 20110324
  Transmission Date: 20110831
  Serious: Yes (Hospitalization, Other)
  Sender: FDA-Public Use
  Company Number: US-PFIZER INC-2011066000

PATIENT
  Age: 70 Year
  Sex: Female

DRUGS (9)
  1. PRADAXA [Suspect]
     Dosage: 150 MG, 2X/DAY
     Route: 048
     Dates: start: 20110218
  2. NORPACE [Concomitant]
  3. MAGNESIUM OXIDE [Concomitant]
  4. PROTONIX [Suspect]
  5. AVAPRO [Suspect]
  6. SYNTHROID [Concomitant]
  7. PRADAXA [Suspect]
     Indication: ATRIAL FIBRILLATION
     Dosage: 150 MG, 2X/DAY
     Route: 048
     Dates: start: 20110125, end: 20110214
  8. DILTIAZEM [Concomitant]
  9. VYTORIN [Concomitant]

REACTIONS (8)
  - ABDOMINAL PAIN [None]
  - VENTRICULAR EXTRASYSTOLES [None]
  - APPENDICITIS PERFORATED [None]
  - WEIGHT DECREASED [None]
  - FLATULENCE [None]
  - HAEMORRHOIDAL HAEMORRHAGE [None]
  - DECREASED APPETITE [None]
  - HAEMORRHOIDS [None]
